FAERS Safety Report 16055460 (Version 2)
Quarter: 2020Q1

REPORT INFORMATION
  Report Type: Spontaneous
  Country: NL (occurrence: NL)
  Receive Date: 20190311
  Receipt Date: 20200130
  Transmission Date: 20200409
  Serious: Yes (Hospitalization)
  Sender: FDA-Public Use
  Company Number: NL-AUROBINDO-AUR-APL-2018-032430

PATIENT

DRUGS (5)
  1. BEVACIZUMAB. [Suspect]
     Active Substance: BEVACIZUMAB
     Indication: COLORECTAL CANCER
     Dosage: ON 07/MAR/2018, RECEIVED BEVACIZUMAB.
     Route: 065
     Dates: start: 20180125
  2. LEUCOVORINE [Suspect]
     Active Substance: LEUCOVORIN
     Indication: COLORECTAL CANCER
     Dosage: ON 07/MAR/2018, RECEIVED LEUCOVORIN.
     Route: 065
     Dates: start: 20180125
  3. IRINOTECAN [Suspect]
     Active Substance: IRINOTECAN
     Indication: COLORECTAL CANCER
     Dosage: ON 07/MAR/2018, RECEIVED IRINOTECAN.
     Route: 065
     Dates: start: 20180125
  4. OXALIPLATIN. [Suspect]
     Active Substance: OXALIPLATIN
     Indication: COLORECTAL CANCER
     Dosage: ON 07/MAR/2018, RECEIVED OXALIPLATIN.
     Route: 065
     Dates: start: 20180125
  5. 5-FU [Suspect]
     Active Substance: FLUOROURACIL
     Indication: COLORECTAL CANCER
     Dosage: ON 07/MAR/2018, RECEIVED 5-FLUOROURACIL.
     Route: 065
     Dates: start: 20180125

REACTIONS (3)
  - Intra-abdominal fluid collection [Recovered/Resolved]
  - Pulmonary embolism [Recovering/Resolving]
  - Post procedural fever [Recovered/Resolved]

NARRATIVE: CASE EVENT DATE: 20180314
